FAERS Safety Report 7419121-4 (Version None)
Quarter: 2011Q2

REPORT INFORMATION
  Report Type: 
  Country: None (occurrence: None)
  Receive Date: 20110415
  Receipt Date: 20110321
  Transmission Date: 20111010
  Serious: No
  Sender: FDA-Public Use
  Company Number: US-B.I. PHARMACEUTICALS,INC./RIDGEFIELD-2011-BP-08780BP

PATIENT
  Sex: Male

DRUGS (11)
  1. LOVAZA [Concomitant]
  2. GLUCOSAMINE [Concomitant]
  3. CLONAZEPAM [Concomitant]
     Dosage: 0.5 MG
  4. PRADAXA [Suspect]
     Indication: CEREBROVASCULAR ACCIDENT PROPHYLAXIS
     Dosage: 300 MG
     Route: 048
     Dates: start: 20110307
  5. FUROSEMIDE [Concomitant]
     Indication: VENOUS INSUFFICIENCY
     Dosage: 40 MG
  6. POTASSIUM [Concomitant]
     Indication: VENOUS INSUFFICIENCY
  7. LIPITOR [Concomitant]
     Dosage: 20 MG
  8. LOMOTIL [Concomitant]
     Indication: HAEMORRHOIDS
  9. TAMSULOSIN [Concomitant]
  10. MULTI-VITAMIN [Concomitant]
  11. HYDROCORTISONE [Concomitant]
     Indication: HAEMORRHOIDS

REACTIONS (5)
  - FLATULENCE [None]
  - RECTAL HAEMORRHAGE [None]
  - DIARRHOEA [None]
  - FAECAL INCONTINENCE [None]
  - ABDOMINAL DISTENSION [None]
